FAERS Safety Report 9071651 (Version 1)
Quarter: 2013Q1

REPORT INFORMATION
  Report Type: Spontaneous
  Country: IT (occurrence: IT)
  Receive Date: 20130129
  Receipt Date: 20130129
  Transmission Date: 20140127
  Serious: Yes (Other)
  Sender: FDA-Public Use
  Company Number: IT-TEVA-381811ISR

PATIENT
  Age: 9 None
  Sex: Male
  Weight: 32 kg

DRUGS (2)
  1. IPRATROPIUM [Suspect]
     Dates: start: 20130107, end: 20130114
  2. SALBUTAMOL [Suspect]
     Dates: start: 20130107, end: 20130114

REACTIONS (1)
  - Pupils unequal [Recovering/Resolving]
